FAERS Safety Report 20774377 (Version 1)
Quarter: 2022Q2

REPORT INFORMATION
  Report Type: Spontaneous
  Country: JP (occurrence: JP)
  Receive Date: 20220502
  Receipt Date: 20220502
  Transmission Date: 20220721
  Serious: Yes (Hospitalization, Other)
  Sender: FDA-Public Use
  Company Number: JP-ONO-2021JP020524

PATIENT
  Age: 76 Year
  Sex: Female
  Weight: 41 kg

DRUGS (4)
  1. YERVOY [Suspect]
     Active Substance: IPILIMUMAB
     Indication: Metastatic renal cell carcinoma
     Dosage: 1 MG/KG
     Route: 041
     Dates: start: 20210204, end: 20210225
  2. OPDIVO [Suspect]
     Active Substance: NIVOLUMAB
     Indication: Metastatic renal cell carcinoma
     Dosage: 240 MG
     Route: 041
     Dates: start: 20210204, end: 20210225
  3. OPDIVO [Suspect]
     Active Substance: NIVOLUMAB
     Dosage: 240 MG
     Route: 041
     Dates: start: 20210406, end: 20210722
  4. OPDIVO [Suspect]
     Active Substance: NIVOLUMAB
     Dosage: 240 MG
     Route: 041
     Dates: start: 20210914, end: 20210928

REACTIONS (5)
  - Interstitial lung disease [Recovered/Resolved]
  - Gallbladder cancer [Recovered/Resolved]
  - Arthritis [Recovered/Resolved]
  - Rash [Recovered/Resolved]
  - Lip erosion [Recovered/Resolved]

NARRATIVE: CASE EVENT DATE: 20210225
